FAERS Safety Report 25343169 (Version 1)
Quarter: 2025Q2

REPORT INFORMATION
  Report Type: Spontaneous
  Country: US (occurrence: US)
  Receive Date: 20250521
  Receipt Date: 20250521
  Transmission Date: 20250717
  Serious: No
  Sender: MERCK SHARP & DOHME LLC
  Company Number: US-009507513-2286326

PATIENT
  Sex: Female
  Weight: 58.967 kg

DRUGS (19)
  1. SOTATERCEPT [Suspect]
     Active Substance: SOTATERCEPT
     Dates: start: 2025
  2. SOTATERCEPT [Suspect]
     Active Substance: SOTATERCEPT
  3. SOTATERCEPT [Suspect]
     Active Substance: SOTATERCEPT
  4. SOTATERCEPT [Suspect]
     Active Substance: SOTATERCEPT
  5. ORENITRAM [Suspect]
     Active Substance: TREPROSTINIL
     Dates: start: 20230426, end: 2025
  6. VITAMINS [Concomitant]
     Active Substance: VITAMINS
  7. CARVEDILOL [Concomitant]
     Active Substance: CARVEDILOL
  8. Imodium?(loperamide hydrochloride [HCl] [Concomitant]
  9. LACTULOSE [Concomitant]
     Active Substance: LACTULOSE
  10. ADEMPAS [Concomitant]
     Active Substance: RIOCIGUAT
  11. GUAIFENESIN [Concomitant]
     Active Substance: GUAIFENESIN
  12. VITAMIN D3 [Concomitant]
     Active Substance: CHOLECALCIFEROL
  13. HYDROXYCHLOROQUINE SULFATE [Concomitant]
     Active Substance: HYDROXYCHLOROQUINE SULFATE
  14. VITAMIN K [Concomitant]
     Active Substance: PHYTONADIONE
  15. hair, skin and nails-biotin [Concomitant]
  16. OXYGEN [Concomitant]
     Active Substance: OXYGEN
  17. PROMETHAZINE HYDROCHLORIDE [Concomitant]
     Active Substance: PROMETHAZINE HYDROCHLORIDE
  18. DEXLANSOPRAZOLE [Concomitant]
     Active Substance: DEXLANSOPRAZOLE
  19. AMBRISENTAN [Concomitant]
     Active Substance: AMBRISENTAN

REACTIONS (1)
  - Headache [Unknown]
